FAERS Safety Report 7806092-1 (Version None)
Quarter: 2011Q4

REPORT INFORMATION
  Report Type: 
  Country: None (occurrence: None)
  Receive Date: 20111011
  Receipt Date: 20111007
  Transmission Date: 20120403
  Serious: No
  Sender: FDA-Public Use
  Company Number: US-PFIZER INC-2011240446

PATIENT
  Sex: Female

DRUGS (2)
  1. CHORIONIC GONADOTROPIN [Concomitant]
     Dosage: UNK
  2. DEPO-PROVERA [Suspect]
     Dosage: EVERY 3 MONTHS

REACTIONS (2)
  - NAUSEA [None]
  - DIZZINESS [None]
